FAERS Safety Report 25222491 (Version 1)
Quarter: 2025Q2

REPORT INFORMATION
  Report Type: Report from Study
  Country: CN (occurrence: CN)
  Receive Date: 20250421
  Receipt Date: 20250421
  Transmission Date: 20250717
  Serious: Yes (Hospitalization)
  Sender: ABBVIE
  Company Number: CN-ABBVIE-6232533

PATIENT
  Age: 68 Year
  Sex: Female

DRUGS (17)
  1. OZURDEX [Suspect]
     Active Substance: DEXAMETHASONE
     Indication: Diabetic retinal oedema
     Route: 050
     Dates: start: 20250110, end: 20250110
  2. LEVOFLOXACIN HYDROCHLORIDE [Concomitant]
     Active Substance: LEVOFLOXACIN HYDROCHLORIDE
     Indication: Prophylaxis
     Route: 047
     Dates: start: 20250310, end: 20250310
  3. LEVOFLOXACIN HYDROCHLORIDE [Concomitant]
     Active Substance: LEVOFLOXACIN HYDROCHLORIDE
     Indication: Prophylaxis
     Route: 047
     Dates: start: 20250312, end: 20250314
  4. LEVOFLOXACIN HYDROCHLORIDE [Concomitant]
     Active Substance: LEVOFLOXACIN HYDROCHLORIDE
     Indication: Prophylaxis
     Route: 047
     Dates: start: 20250112, end: 20250114
  5. INSULIN DEGLUDEC [Concomitant]
     Active Substance: INSULIN DEGLUDEC
     Indication: Type 2 diabetes mellitus
     Dosage: 14 IU (INTERNATIONAL UNIT)
     Route: 058
     Dates: start: 20250407, end: 20250408
  6. INSULIN DEGLUDEC [Concomitant]
     Active Substance: INSULIN DEGLUDEC
     Indication: Type 2 diabetes mellitus
     Dosage: 12 IU (INTERNATIONAL UNIT)
     Route: 058
     Dates: start: 20250409
  7. INSULIN DEGLUDEC [Concomitant]
     Active Substance: INSULIN DEGLUDEC
     Indication: Type 2 diabetes mellitus
     Dosage: 12 IU (INTERNATIONAL UNIT)
     Dates: start: 202405, end: 20250406
  8. LISINOPRIL AND HYDROCHLOROTHIAZIDE [Concomitant]
     Active Substance: HYDROCHLOROTHIAZIDE\LISINOPRIL
     Indication: Type 2 diabetes mellitus
     Dosage: 1 TABLET
     Route: 048
     Dates: start: 202403
  9. BLOOD, BOVINE [Concomitant]
     Active Substance: BLOOD, BOVINE
     Indication: Diabetic retinopathy
     Route: 047
     Dates: start: 20250313, end: 20250414
  10. BLOOD, BOVINE [Concomitant]
     Active Substance: BLOOD, BOVINE
     Indication: Diabetic retinopathy
     Route: 047
     Dates: start: 20250212, end: 20250303
  11. BEZAFIBRATE [Concomitant]
     Active Substance: BEZAFIBRATE
     Indication: Hypertriglyceridaemia
     Dosage: 1 TABLET
     Route: 048
     Dates: start: 202403, end: 20250111
  12. He Xue Ming Mu [Concomitant]
     Indication: Diabetic retinopathy
     Route: 048
     Dates: start: 20250212, end: 20250222
  13. He Xue Ming Mu [Concomitant]
     Indication: Diabetic retinopathy
     Route: 048
     Dates: start: 20250315, end: 20250404
  14. AFLIBERCEPT [Concomitant]
     Active Substance: AFLIBERCEPT
     Indication: Product used for unknown indication
     Route: 047
     Dates: start: 20250311, end: 20250311
  15. LIRAGLUTIDE [Concomitant]
     Active Substance: LIRAGLUTIDE
     Indication: Type 2 diabetes mellitus
     Dosage: 14 IU (INTERNATIONAL UNIT)
     Route: 058
     Dates: start: 20250407, end: 20250408
  16. LIRAGLUTIDE [Concomitant]
     Active Substance: LIRAGLUTIDE
     Indication: Type 2 diabetes mellitus
     Dosage: 12 IU (INTERNATIONAL UNIT)
     Route: 065
     Dates: start: 202405, end: 20250406
  17. LIRAGLUTIDE [Concomitant]
     Active Substance: LIRAGLUTIDE
     Indication: Type 2 diabetes mellitus
     Dosage: 12 IU (INTERNATIONAL UNIT)
     Route: 058
     Dates: start: 20250409

REACTIONS (1)
  - Abdominal pain [Not Recovered/Not Resolved]

NARRATIVE: CASE EVENT DATE: 20250405
